FAERS Safety Report 23696945 (Version 1)
Quarter: 2024Q2

REPORT INFORMATION
  Report Type: Spontaneous
  Country: NO (occurrence: NO)
  Receive Date: 20240402
  Receipt Date: 20240402
  Transmission Date: 20240716
  Serious: Yes (Other)
  Sender: FDA-Public Use
  Company Number: NO-AMGEN-NORSP2024051021

PATIENT
  Age: 72 Year
  Sex: Female

DRUGS (4)
  1. GEMCITABINE [Suspect]
     Active Substance: GEMCITABINE
     Indication: Pancreatic carcinoma metastatic
     Dosage: UNK
     Route: 065
  2. PANITUMUMAB [Suspect]
     Active Substance: PANITUMUMAB
     Indication: Pancreatic carcinoma metastatic
     Dosage: 6 MILLIGRAM/KILOGRAM
     Route: 042
  3. PANITUMUMAB [Suspect]
     Active Substance: PANITUMUMAB
     Indication: Neuralgia
  4. ERLOTINIB [Concomitant]
     Active Substance: ERLOTINIB
     Indication: Pancreatic carcinoma metastatic
     Dosage: 150 MILLIGRAM, QD
     Route: 048

REACTIONS (5)
  - Neuralgia [Recovering/Resolving]
  - Dry skin [Unknown]
  - Dermatitis acneiform [Recovering/Resolving]
  - Drug effective for unapproved indication [Unknown]
  - Off label use [Unknown]
